FAERS Safety Report 8035870-1 (Version None)
Quarter: 2012Q1

REPORT INFORMATION
  Report Type: 
  Country: None (occurrence: None)
  Receive Date: 20120111
  Receipt Date: 20120111
  Transmission Date: 20120608
  Serious: No
  Sender: FDA-Public Use
  Company Number: None

PATIENT
  Age: 59 Year
  Sex: Male
  Weight: 115 kg

DRUGS (1)
  1. PACERONE [Suspect]
     Indication: VENTRICULAR ARRHYTHMIA
     Dosage: 400MG
     Route: 048

REACTIONS (15)
  - BLOOD ALBUMIN DECREASED [None]
  - BLOOD THYROID STIMULATING HORMONE INCREASED [None]
  - CALCINOSIS [None]
  - PCO2 DECREASED [None]
  - WHITE BLOOD CELL COUNT INCREASED [None]
  - PNEUMONITIS [None]
  - BLOOD GLUCOSE INCREASED [None]
  - HYPERSENSITIVITY [None]
  - CARDIOMEGALY [None]
  - PROTEIN TOTAL DECREASED [None]
  - ACUTE RESPIRATORY DISTRESS SYNDROME [None]
  - TOXICITY TO VARIOUS AGENTS [None]
  - PULMONARY TOXICITY [None]
  - CARDIAC FAILURE CONGESTIVE [None]
  - ELECTROCARDIOGRAM T WAVE INVERSION [None]
